FAERS Safety Report 15172832 (Version 1)
Quarter: 2018Q3

REPORT INFORMATION
  Report Type: Spontaneous
  Country: US (occurrence: US)
  Receive Date: 20180720
  Receipt Date: 20180720
  Transmission Date: 20181010
  Serious: Yes (Other)
  Sender: FDA-Public Use
  Company Number: US-ROCHE-1993394

PATIENT
  Age: 11 Year
  Sex: Female

DRUGS (3)
  1. FOSCARNET [Suspect]
     Active Substance: FOSCARNET
     Dosage: MAINTENANCE THERAPY
     Route: 065
  2. GANCICLOVIR. [Suspect]
     Active Substance: GANCICLOVIR
     Indication: CYTOMEGALOVIRUS CHORIORETINITIS
     Dosage: INDUCTION THERAPY
     Route: 042
  3. FOSCARNET [Suspect]
     Active Substance: FOSCARNET
     Indication: CYTOMEGALOVIRUS CHORIORETINITIS
     Dosage: INDUCTION THERAPY
     Route: 065

REACTIONS (4)
  - Renal disorder [Unknown]
  - Electrolyte imbalance [Unknown]
  - Cardiac disorder [Unknown]
  - Pancytopenia [Unknown]
